FAERS Safety Report 7400923-5 (Version None)
Quarter: 2011Q2

REPORT INFORMATION
  Report Type: 
  Country: None (occurrence: None)
  Receive Date: 20110407
  Receipt Date: 20110329
  Transmission Date: 20111010
  Serious: Yes (Hospitalization)
  Sender: FDA-Public Use
  Company Number: US-ASTRAZENECA-2011SE17610

PATIENT
  Age: 57 Year
  Sex: Female
  Weight: 55.8 kg

DRUGS (3)
  1. CRESTOR [Suspect]
     Route: 048
     Dates: start: 20060101, end: 20110322
  2. VASOTEC [Concomitant]
  3. LEXAPRO [Concomitant]

REACTIONS (14)
  - BURNING SENSATION [None]
  - ARTHRALGIA [None]
  - INTERVERTEBRAL DISC DEGENERATION [None]
  - FIBROMYALGIA [None]
  - MYALGIA [None]
  - PAIN IN EXTREMITY [None]
  - CHOLECYSTECTOMY [None]
  - PAIN [None]
  - MUSCULOSKELETAL PAIN [None]
  - SINUS TACHYCARDIA [None]
  - CHEST PAIN [None]
  - PARAESTHESIA [None]
  - MUSCULAR WEAKNESS [None]
  - SCIATICA [None]
